FAERS Safety Report 6020208-1 (Version None)
Quarter: 2008Q4

REPORT INFORMATION
  Report Type: 
  Country: None (occurrence: None)
  Receive Date: 20081223
  Receipt Date: 20081223
  Transmission Date: 20090506
  Serious: Yes (Hospitalization)
  Sender: FDA-Public Use
  Company Number: None

PATIENT
  Sex: Male
  Weight: 36.9 kg

DRUGS (7)
  1. CYTOXAN [Suspect]
     Indication: EPENDYMOMA
     Dosage: 75MG QHS OTHER
     Route: 050
     Dates: start: 20080804, end: 20081128
  2. CELEBREX [Suspect]
     Indication: EPENDYMOMA
     Dosage: 100MG BID OTHER
     Route: 050
     Dates: start: 20080804, end: 20081208
  3. THALIDOMIDE [Suspect]
     Indication: EPENDYMOMA
     Dosage: 450MG QD OTHER
     Route: 050
     Dates: start: 20080804, end: 20081208
  4. ZANTAC [Concomitant]
  5. MIRALAX [Concomitant]
  6. BACTRIM [Concomitant]
  7. LABETALOL [Concomitant]

REACTIONS (4)
  - DISEASE PROGRESSION [None]
  - LYMPHOCYTE COUNT ABNORMAL [None]
  - NEUTROPHIL COUNT ABNORMAL [None]
  - WHITE BLOOD CELL COUNT ABNORMAL [None]
